FAERS Safety Report 12920374 (Version 1)
Quarter: 2016Q4

REPORT INFORMATION
  Report Type: Spontaneous
  Country: US (occurrence: US)
  Receive Date: 20161104
  Receipt Date: 20161104
  Transmission Date: 20170207
  Serious: Yes (Hospitalization)
  Sender: FDA-Public Use
  Company Number: None

PATIENT
  Age: 71 Year
  Sex: Male
  Weight: 123.3 kg

DRUGS (2)
  1. WARFARIN [Suspect]
     Active Substance: WARFARIN
     Indication: EMBOLISM
     Dosage: MG PO
     Route: 048
     Dates: start: 20151202, end: 20161013
  2. WARFARIN [Suspect]
     Active Substance: WARFARIN
     Indication: VENOUS THROMBOSIS
     Dosage: MG PO
     Route: 048
     Dates: start: 20151202, end: 20161013

REACTIONS (2)
  - International normalised ratio increased [None]
  - Cerebral haemorrhage [None]

NARRATIVE: CASE EVENT DATE: 20161013
